FAERS Safety Report 13259746 (Version 7)
Quarter: 2017Q3

REPORT INFORMATION
  Report Type: Report from Study
  Country: US (occurrence: US)
  Receive Date: 20170222
  Receipt Date: 20170828
  Transmission Date: 20171127
  Serious: Yes (Hospitalization, Other)
  Sender: FDA-Public Use
  Company Number: US-PFIZER INC-2017072970

PATIENT
  Age: 70 Year
  Sex: Female

DRUGS (5)
  1. IBRANCE [Suspect]
     Active Substance: PALBOCICLIB
     Dosage: 100 MG, CYCLIC (DAILY X 21 DAYS Q 28 DAYS)
     Route: 048
     Dates: start: 20170328, end: 20170620
  2. IBRANCE [Suspect]
     Active Substance: PALBOCICLIB
     Indication: BREAST CANCER METASTATIC
     Dosage: 125 MG, DAILY
     Route: 048
     Dates: start: 20170104, end: 20170403
  3. IBRANCE [Suspect]
     Active Substance: PALBOCICLIB
     Dosage: 100 MG, DAILY
     Route: 048
     Dates: start: 20170104, end: 20170622
  4. IBRANCE [Suspect]
     Active Substance: PALBOCICLIB
     Dosage: 125 MG, CYCLIC (DAILY X 21 DAYS Q 28 DAYS)
     Route: 048
     Dates: start: 20170103, end: 20170328
  5. FASLODEX [Concomitant]
     Active Substance: FULVESTRANT
     Dosage: 500 MG, DAILY (Q 28 DAYS)
     Dates: start: 20131203

REACTIONS (17)
  - Muscle spasms [Unknown]
  - Kidney infection [Unknown]
  - Dyspnoea [Not Recovered/Not Resolved]
  - Pneumonia [Recovered/Resolved]
  - Leukopenia [Unknown]
  - Osteonecrosis of jaw [Unknown]
  - Fatigue [Not Recovered/Not Resolved]
  - Neoplasm progression [Unknown]
  - Confusional state [Unknown]
  - Sepsis [Unknown]
  - Bone marrow failure [Not Recovered/Not Resolved]
  - Hypoaesthesia [Unknown]
  - Urinary tract infection [Recovered/Resolved]
  - Dizziness [Recovering/Resolving]
  - Neuropathy peripheral [Unknown]
  - Neutropenia [Recovered/Resolved]
  - Asthenia [Unknown]

NARRATIVE: CASE EVENT DATE: 20170124
